FAERS Safety Report 15132667 (Version 3)
Quarter: 2019Q1

REPORT INFORMATION
  Report Type: Spontaneous
  Country: US (occurrence: US)
  Receive Date: 20180712
  Receipt Date: 20190328
  Transmission Date: 20190417
  Serious: No
  Sender: FDA-Public Use
  Company Number: US-ASTRAZENECA-2018SE80813

PATIENT
  Sex: Female

DRUGS (1)
  1. TAGRISSO [Suspect]
     Active Substance: OSIMERTINIB
     Route: 048

REACTIONS (6)
  - Nausea [Unknown]
  - Nail disorder [Unknown]
  - Cough [Unknown]
  - Diarrhoea [Unknown]
  - Rash [Unknown]
  - Weight decreased [Unknown]
